FAERS Safety Report 24298586 (Version 1)
Quarter: 2024Q3

REPORT INFORMATION
  Report Type: Spontaneous
  Country: US (occurrence: None)
  Receive Date: 20240906
  Receipt Date: 20240906
  Transmission Date: 20241016
  Serious: Yes (Hospitalization)
  Sender: Public
  Company Number: None

PATIENT
  Sex: Female

DRUGS (2)
  1. TERIPARATIDE ACETATE [Suspect]
     Active Substance: TERIPARATIDE ACETATE
     Indication: Osteoporosis
     Dosage: FREQUENCY : DAILY;?
     Route: 042
     Dates: start: 202408
  2. FORTEO DELIVERY DEVICE [Concomitant]
     Indication: Osteoporosis
     Dosage: 20 MCG DAILY UNDER SKING
     Route: 058
     Dates: start: 202408

REACTIONS (1)
  - Wrist fracture [None]
